FAERS Safety Report 11719059 (Version 1)
Quarter: 2015Q4

REPORT INFORMATION
  Report Type: Spontaneous
  Country: US (occurrence: None)
  Receive Date: 20151109
  Receipt Date: 20151109
  Transmission Date: 20160304
  Serious: Yes (Hospitalization)
  Sender: FDA-Public Use
  Company Number: None

PATIENT
  Age: 88 Year
  Sex: Female
  Weight: 85.7 kg

DRUGS (1)
  1. TIKOSYN [Suspect]
     Active Substance: DOFETILIDE
     Indication: ATRIAL FIBRILLATION
     Route: 048
     Dates: start: 20130101, end: 20151105

REACTIONS (6)
  - Pain [None]
  - Asthenia [None]
  - Muscular weakness [None]
  - Electrocardiogram QT prolonged [None]
  - Gait disturbance [None]
  - Mental status changes [None]

NARRATIVE: CASE EVENT DATE: 20151105
